FAERS Safety Report 7000952-X (Version None)
Quarter: 2010Q3

REPORT INFORMATION
  Report Type: 
  Country: None (occurrence: None)
  Receive Date: 20100920
  Receipt Date: 20100908
  Transmission Date: 20110219
  Serious: Yes (Hospitalization, Other)
  Sender: FDA-Public Use
  Company Number: US-SANOFI-AVENTIS-2010SA044487

PATIENT
  Age: 51 Year
  Sex: Female
  Weight: 109.77 kg

DRUGS (10)
  1. LOVENOX [Suspect]
     Indication: ANGIOPLASTY
     Route: 058
     Dates: start: 20100604, end: 20100611
  2. LOVENOX [Suspect]
     Indication: ANTICOAGULANT THERAPY
     Route: 058
     Dates: start: 20100604, end: 20100611
  3. LANTUS [Concomitant]
     Dosage: DOSE:45 UNIT(S)
     Route: 058
  4. HYDROCHLOROTHIAZIDE [Concomitant]
     Indication: HYPERTENSION
  5. LISINOPRIL [Concomitant]
     Indication: HYPERTENSION
  6. TOPROL-XL [Concomitant]
     Indication: HYPERTENSION
  7. HUMALOG [Concomitant]
     Dosage: DOSE:14 UNIT(S)
  8. DILTIAZEM [Concomitant]
     Indication: HYPERTENSION
  9. COUMADIN [Concomitant]
     Indication: MITRAL VALVE REPAIR
     Dosage: 7.5 MG MONDAY -FRIDAY  AND 10 MG SATURDAY AND SUNDAY
  10. SIMVASTATIN [Concomitant]

REACTIONS (6)
  - CELLULITIS [None]
  - INDURATION [None]
  - INJECTION SITE NECROSIS [None]
  - PAIN [None]
  - SKIN FIBROSIS [None]
  - TENDERNESS [None]
